FAERS Safety Report 6761256-3 (Version None)
Quarter: 2010Q2

REPORT INFORMATION
  Report Type: 
  Country: None (occurrence: None)
  Receive Date: 20100608
  Receipt Date: 20100526
  Transmission Date: 20101027
  Serious: Yes (Hospitalization)
  Sender: FDA-Public Use
  Company Number: US-MYLANLABS-2010S1009338

PATIENT
  Age: 66 Year
  Sex: Male

DRUGS (6)
  1. TRIAMTERENE AND HYDROCHLOROTHIAZIDE [Suspect]
     Dosage: 25/18.75
  2. TOLTERODINE [Concomitant]
  3. LISINOPRIL [Concomitant]
  4. SIMVASTATIN [Concomitant]
  5. BUPROPION HCL [Concomitant]
  6. OXYBUTYNIN CHLORIDE [Concomitant]

REACTIONS (2)
  - NEPHROLITHIASIS [None]
  - RENAL TUBULAR NECROSIS [None]
